FAERS Safety Report 4556076-4 (Version None)
Quarter: 2005Q1

REPORT INFORMATION
  Report Type: 
  Country: None (occurrence: None)
  Receive Date: 20050118
  Receipt Date: 20031217
  Transmission Date: 20050727
  Serious: Yes (Hospitalization)
  Sender: FDA-Public Use
  Company Number: A001-002-005871

PATIENT
  Age: 80 Year
  Sex: Male
  Weight: 90 kg

DRUGS (4)
  1. ARICEPT [Suspect]
     Indication: DEMENTIA ALZHEIMER'S TYPE
     Dosage: 5 MG , 1 IN 1 D, ORAL  : 10 MG , 1 IN 1 D, ORAL
     Route: 048
     Dates: start: 20030201, end: 20030301
  2. ARICEPT [Suspect]
     Indication: DEMENTIA ALZHEIMER'S TYPE
     Dosage: 5 MG , 1 IN 1 D, ORAL  : 10 MG , 1 IN 1 D, ORAL
     Route: 048
     Dates: start: 20030301
  3. LEVOXYL [Concomitant]
  4. COUMADIN [Concomitant]

REACTIONS (1)
  - PANCREATITIS [None]
